FAERS Safety Report 16424100 (Version 3)
Quarter: 2020Q2

REPORT INFORMATION
  Report Type: Spontaneous
  Country: CN (occurrence: CN)
  Receive Date: 20190613
  Receipt Date: 20200409
  Transmission Date: 20200713
  Serious: Yes (Other)
  Sender: FDA-Public Use
  Company Number: CN-ROCHE-2334898

PATIENT
  Age: 51 Year
  Sex: Female

DRUGS (3)
  1. PERJETA [Suspect]
     Active Substance: PERTUZUMAB
     Indication: INVASIVE BREAST CARCINOMA
     Route: 065
     Dates: start: 20190426
  2. HERCEPTIN [Suspect]
     Active Substance: TRASTUZUMAB
     Indication: INVASIVE BREAST CARCINOMA
     Route: 065
     Dates: start: 20190426
  3. DOCETAXEL. [Suspect]
     Active Substance: DOCETAXEL
     Indication: INVASIVE BREAST CARCINOMA
     Route: 065
     Dates: start: 20190426

REACTIONS (2)
  - Bone marrow failure [Unknown]
  - Diarrhoea [Unknown]
